FAERS Safety Report 5728175-2 (Version None)
Quarter: 2008Q2

REPORT INFORMATION
  Report Type: 
  Country: None (occurrence: None)
  Receive Date: 20080430
  Receipt Date: 20080421
  Transmission Date: 20081010
  Serious: Yes (Other)
  Sender: FDA-Public Use
  Company Number: TPA2008A00235

PATIENT
  Age: 63 Year
  Sex: Male

DRUGS (5)
  1. ACTOS [Suspect]
     Indication: DIABETES MELLITUS
     Dosage: 30 MG, 1 IN 1 D, PER ORAL
     Route: 048
     Dates: start: 20010808, end: 20080125
  2. VERAPAMIL [Concomitant]
  3. LIPITOR [Concomitant]
  4. ZESTORETIC [Concomitant]
  5. CARDURA [Concomitant]

REACTIONS (2)
  - HAEMATURIA [None]
  - TRANSITIONAL CELL CARCINOMA [None]
